FAERS Safety Report 14427140 (Version 1)
Quarter: 2018Q1

REPORT INFORMATION
  Report Type: Spontaneous
  Country: US (occurrence: US)
  Receive Date: 20180123
  Receipt Date: 20180123
  Transmission Date: 20180509
  Serious: No
  Sender: FDA-Public Use
  Company Number: US-IMPAX LABORATORIES, INC-2017-IPXL-03339

PATIENT
  Age: 70 Year
  Sex: Female

DRUGS (1)
  1. RYTARY [Suspect]
     Active Substance: CARBIDOPA\LEVODOPA
     Indication: PRODUCT USED FOR UNKNOWN INDICATION
     Dosage: 36.25/145 MG, 61.25/245 MG AND 48.75/195 MG (PATIENT WAS NOT SURE OF RYTARY DOSE)
     Route: 048

REACTIONS (3)
  - Malaise [Unknown]
  - Insomnia [Unknown]
  - Anxiety [Unknown]
